FAERS Safety Report 23804619 (Version 1)
Quarter: 2024Q2

REPORT INFORMATION
  Report Type: Spontaneous
  Country: ES (occurrence: ES)
  Receive Date: 20240501
  Receipt Date: 20240501
  Transmission Date: 20240716
  Serious: Yes (Life-Threatening, Hospitalization)
  Sender: FDA-Public Use
  Company Number: None

PATIENT
  Age: 47 Year
  Sex: Male

DRUGS (4)
  1. PEMETREXED [Suspect]
     Active Substance: PEMETREXED
     Indication: Adenosquamous cell lung cancer stage IV
     Dosage: 500 MG/M2, UNKNOWN
     Route: 042
     Dates: start: 20240319, end: 20240409
  2. OPDIVO [Suspect]
     Active Substance: NIVOLUMAB
     Indication: Adenosquamous cell lung cancer stage IV
     Dosage: 300 MG, OTHER (EVERY 21 DAYS)
     Route: 042
     Dates: start: 20240319, end: 20240409
  3. CARBOPLATIN [Suspect]
     Active Substance: CARBOPLATIN
     Indication: Adenosquamous cell lung cancer stage IV
     Dosage: UNK, UNKNOWN
     Route: 042
     Dates: start: 20240319, end: 20240409
  4. YERVOY [Suspect]
     Active Substance: IPILIMUMAB
     Indication: Adenosquamous cell lung cancer stage IV
     Dosage: 1 MG/KG, OTHER (EVERY 6 WEEKS)
     Route: 042
     Dates: start: 20240319, end: 20240409

REACTIONS (5)
  - Immune-mediated enterocolitis [Recovered/Resolved]
  - Agranulocytosis [Recovered/Resolved]
  - Thrombocytopenia [Recovered/Resolved]
  - Immune-mediated hepatitis [Recovered/Resolved]
  - Mucosal inflammation [Recovered/Resolved]

NARRATIVE: CASE EVENT DATE: 20240415
